FAERS Safety Report 20050025 (Version 1)
Quarter: 2021Q4

REPORT INFORMATION
  Report Type: Report from Study
  Country: RU (occurrence: RU)
  Receive Date: 20211109
  Receipt Date: 20211109
  Transmission Date: 20220303
  Serious: Yes (Hospitalization)
  Sender: FDA-Public Use
  Company Number: RU-SA-2019SA042191

PATIENT
  Age: 68 Year
  Sex: Male
  Weight: 78.2 kg

DRUGS (14)
  1. ISATUXIMAB [Suspect]
     Active Substance: ISATUXIMAB
     Indication: Plasma cell myeloma
     Dosage: 10 MG/KG, QW
     Route: 042
     Dates: start: 20190208, end: 20190208
  2. ISATUXIMAB [Suspect]
     Active Substance: ISATUXIMAB
     Dosage: 10 MG/KG, QW
     Route: 042
     Dates: start: 20180917, end: 20180917
  3. BORTEZOMIB [Suspect]
     Active Substance: BORTEZOMIB
     Indication: Plasma cell myeloma
     Dosage: 1.3 MG/M2, OTHER
     Route: 058
     Dates: start: 20190204, end: 20190204
  4. BORTEZOMIB [Suspect]
     Active Substance: BORTEZOMIB
     Dosage: 1.3 MG/M2; OTHER
     Route: 058
     Dates: start: 20180917, end: 20180917
  5. LENALIDOMIDE [Suspect]
     Active Substance: LENALIDOMIDE
     Indication: Plasma cell myeloma
     Dosage: 25 MG, QD
     Route: 048
     Dates: start: 20190125, end: 20190207
  6. LENALIDOMIDE [Suspect]
     Active Substance: LENALIDOMIDE
     Dosage: 10 MG, QD
     Route: 048
     Dates: start: 20180917, end: 20180923
  7. DEXAMETHASONE [Suspect]
     Active Substance: DEXAMETHASONE
     Indication: Plasma cell myeloma
     Dosage: 20 MG
     Route: 042
     Dates: start: 20190208, end: 20190208
  8. DEXAMETHASONE [Suspect]
     Active Substance: DEXAMETHASONE
     Dosage: 20 MG
     Route: 042
     Dates: start: 20180917, end: 20180917
  9. ALLOPURINOL [Concomitant]
     Active Substance: ALLOPURINOL
     Indication: Prophylaxis
     Dosage: UNK UNK, UNK
     Route: 048
     Dates: start: 20180827
  10. BISEPTOL [Concomitant]
     Active Substance: SULFAMETHOXAZOLE\TRIMETHOPRIM
     Indication: Prophylaxis
     Dosage: UNK UNK, UNK
     Route: 048
     Dates: start: 20180827
  11. ACYCLOVIR [Concomitant]
     Active Substance: ACYCLOVIR
     Indication: Prophylaxis
     Dosage: UNK UNK, UNK
     Route: 048
     Dates: start: 20180827
  12. CARDIOMAGNYL [Concomitant]
     Active Substance: ASPIRIN\MAGNESIUM HYDROXIDE
     Indication: Prophylaxis
     Dosage: UNK UNK, UNK
     Route: 048
     Dates: start: 20180912
  13. XARELTO [Concomitant]
     Active Substance: RIVAROXABAN
     Indication: Prophylaxis
     Dosage: UNK UNK, UNK
     Route: 048
     Dates: start: 20180912
  14. OMEPRAZOLE [Concomitant]
     Active Substance: OMEPRAZOLE
     Indication: Prophylaxis
     Dosage: UNK UNK, UNK
     Route: 048
     Dates: start: 20180912

REACTIONS (1)
  - Bronchitis [Recovered/Resolved]

NARRATIVE: CASE EVENT DATE: 20190208
